FAERS Safety Report 9819728 (Version 1)
Quarter: 2014Q1

REPORT INFORMATION
  Report Type: Spontaneous
  Country: US (occurrence: US)
  Receive Date: 20140116
  Receipt Date: 20140116
  Transmission Date: 20141002
  Serious: Yes (Death)
  Sender: FDA-Public Use
  Company Number: US-ROCHE-1334409

PATIENT
  Sex: Female

DRUGS (4)
  1. XELODA [Suspect]
     Indication: COLON CANCER
     Route: 065
  2. SPIRIVA [Concomitant]
     Route: 065
  3. MORPHINE SULFATE [Concomitant]
     Route: 065
  4. NEXIUM [Concomitant]
     Route: 065

REACTIONS (1)
  - Death [Fatal]
